FAERS Safety Report 4550654-4 (Version None)
Quarter: 2004Q4

REPORT INFORMATION
  Report Type: 
  Country: None (occurrence: None)
  Receive Date: 20041227
  Receipt Date: 20040901
  Transmission Date: 20050328
  Serious: No
  Sender: FDA-Public Use
  Company Number: 04P-163-0272399-00

PATIENT
  Age: 70 Year
  Sex: Female
  Weight: 67.1324 kg

DRUGS (13)
  1. HUMIRA [Suspect]
     Indication: RHEUMATOID ARTHRITIS
     Dosage: 40 MG, 1 IN 2 WK, SUBCUTANEOUS
     Route: 058
     Dates: start: 20040701
  2. METHOTREXATE SODIUM [Concomitant]
  3. CELECOXIB [Concomitant]
  4. ACETAMINOPHEN W/ CODEINE [Concomitant]
  5. MULTI-VITAMINS [Concomitant]
  6. SIMVASTATIN [Concomitant]
  7. RAMIPRIL [Concomitant]
  8. PANTOPRAZOLE [Concomitant]
  9. GLUTAMATE SODIUM [Concomitant]
  10. SULTOPRIDE [Concomitant]
  11. ALBUTEROL [Concomitant]
  12. SERETIDE MITE [Concomitant]
  13. IPATROPIUM BROMIDE [Concomitant]

REACTIONS (2)
  - OILY SKIN [None]
  - PAIN IN EXTREMITY [None]
